FAERS Safety Report 6064487-3 (Version None)
Quarter: 2009Q1

REPORT INFORMATION
  Report Type: 
  Country: None (occurrence: None)
  Receive Date: 20090204
  Receipt Date: 20090203
  Transmission Date: 20090719
  Serious: Yes (Other)
  Sender: FDA-Public Use
  Company Number: US-BAYER-200814063BCC

PATIENT
  Age: 79 Year
  Sex: Female
  Weight: 72 kg

DRUGS (12)
  1. BAYER EXTRA STRENGTH BACK + BODY PAIN [Suspect]
     Indication: ARTHRITIS
     Dosage: AS USED: 2 DF  UNIT DOSE: 1 DF
     Route: 048
  2. ASPIRIN [Suspect]
     Indication: ARTHRITIS
     Route: 048
     Dates: start: 20000101
  3. MILK OF MAGNESIA TAB [Suspect]
     Indication: CONSTIPATION
     Dates: start: 20000101
  4. VITAMIN E [Concomitant]
  5. ASCORBIC ACID [Concomitant]
  6. GARLIC [Concomitant]
  7. FLAX SEED OIL [Concomitant]
  8. OMEGA [Concomitant]
  9. LYSINE [Concomitant]
  10. VITAMIN B COMPLEX CAP [Concomitant]
  11. CALCIUM [Concomitant]
  12. ZINC [Concomitant]

REACTIONS (2)
  - CONSTIPATION [None]
  - HAEMORRHOIDAL HAEMORRHAGE [None]
